FAERS Safety Report 25732150 (Version 1)
Quarter: 2025Q3

REPORT INFORMATION
  Report Type: Spontaneous
  Country: US (occurrence: None)
  Receive Date: 20250827
  Receipt Date: 20250827
  Transmission Date: 20251021
  Serious: Yes (Other)
  Sender: FDA-CTU
  Company Number: None

PATIENT
  Age: 41 Year
  Sex: Male
  Weight: 86.2 kg

DRUGS (2)
  1. CIPROFLOXACIN [Suspect]
     Active Substance: CIPROFLOXACIN
     Indication: Human bite
     Dosage: FREQUENCY : TWICE A DAY;?
     Route: 048
     Dates: start: 20250607, end: 20250613
  2. CLINDAMYCIN [Concomitant]
     Active Substance: CLINDAMYCIN

REACTIONS (4)
  - Depression [None]
  - Mood swings [None]
  - Lethargy [None]
  - Anxiety [None]
